FAERS Safety Report 7047046-5 (Version None)
Quarter: 2010Q4

REPORT INFORMATION
  Report Type: 
  Country: None (occurrence: None)
  Receive Date: 20101012
  Receipt Date: 20100812
  Transmission Date: 20110411
  Serious: Yes (Hospitalization)
  Sender: FDA-Public Use
  Company Number: PPC201000044

PATIENT
  Age: 75 Year
  Sex: Male
  Weight: 50 kg

DRUGS (4)
  1. AMIODARONE HYDROCHLORIE (AMIODARONE HYDROCHLORIDE) [Suspect]
     Indication: ATRIAL FIBRILLATION
     Dosage: 400 MG, DAILY
     Dates: start: 20040701
  2. CARVEDILOL [Concomitant]
  3. DILTIAZEM [Concomitant]
  4. TRIFLUSAL [Concomitant]

REACTIONS (11)
  - BLOOD ALBUMIN DECREASED [None]
  - CHRONIC HEPATITIS [None]
  - DEMYELINATING POLYNEUROPATHY [None]
  - GAIT DISTURBANCE [None]
  - HAEMOGLOBIN DECREASED [None]
  - HEPATIC STEATOSIS [None]
  - HEPATOTOXICITY [None]
  - MUSCULAR WEAKNESS [None]
  - NAUSEA [None]
  - PERIPHERAL SENSORIMOTOR NEUROPATHY [None]
  - VOMITING [None]
